FAERS Safety Report 7033906-8 (Version None)
Quarter: 2010Q4

REPORT INFORMATION
  Report Type: 
  Country: None (occurrence: None)
  Receive Date: 20101005
  Receipt Date: 20100921
  Transmission Date: 20110411
  Serious: Yes (Other)
  Sender: FDA-Public Use
  Company Number: CIP10002327

PATIENT
  Age: 37 Year
  Sex: Female
  Weight: 76.2 kg

DRUGS (7)
  1. ASACOL [Suspect]
     Indication: COLITIS ULCERATIVE
     Dosage: 400 MG ORAL
     Route: 048
  2. TACROLIMUS [Suspect]
     Indication: TRANSPLANT
     Dosage: 2 MG EVERY MORNING, ORAL 1 MG EVERY EVENING, ORAL
     Route: 048
     Dates: end: 20100101
  3. NITROFURANTOIN [Suspect]
     Indication: PROPHYLAXIS URINARY TRACT INFECTION
     Dosage: ORAL
     Route: 048
  4. PREDNISONE TAB [Suspect]
     Indication: TRANSPLANT
     Dosage: 2.5 MG DAILY, ORAL 40 MG DAILY, ORAL 10 MG DAILY, ORAL
     Route: 048
  5. FAMOTIDINE [Suspect]
     Indication: DYSPEPSIA
     Dosage: ORAL
     Route: 048
  6. PRENATAL VITAMINS /01549301/ (ASCORBIC ACID, BIOTIN, MINERALS NOS, NIC [Suspect]
     Dosage: ORAL
     Route: 048
  7. IRON (IRON) [Suspect]
     Dosage: ORAL
     Route: 048

REACTIONS (3)
  - DRUG EXPOSURE DURING PREGNANCY [None]
  - PRE-ECLAMPSIA [None]
  - PREMATURE BABY [None]
